FAERS Safety Report 6119373-7 (Version None)
Quarter: 2009Q1

REPORT INFORMATION
  Report Type: 
  Country: None (occurrence: None)
  Receive Date: 20090316
  Receipt Date: 20090305
  Transmission Date: 20090719
  Serious: Yes (Hospitalization, Other)
  Sender: FDA-Public Use
  Company Number: PHHY2009BR08157

PATIENT
  Sex: Female
  Weight: 45 kg

DRUGS (2)
  1. VOLTAREN [Suspect]
     Indication: BACK PAIN
     Dosage: 1 SUPPOSITORY EVERY 8 OR 12 HRS
     Route: 054
  2. MIOSAN [Concomitant]
     Dosage: 5 MG, Q12H

REACTIONS (14)
  - BACK PAIN [None]
  - BEDRIDDEN [None]
  - DRUG INEFFECTIVE [None]
  - ENDOSCOPY [None]
  - GASTRIC ULCER [None]
  - OESOPHAGEAL DILATATION [None]
  - OESOPHAGEAL STENOSIS [None]
  - OESOPHAGITIS [None]
  - OSTEOPOROSIS [None]
  - PARENTERAL NUTRITION [None]
  - PHYSIOTHERAPY [None]
  - PNEUMONIA ASPIRATION [None]
  - PRODUCT QUALITY ISSUE [None]
  - WEIGHT DECREASED [None]
